FAERS Safety Report 8044533-8 (Version None)
Quarter: 2012Q1

REPORT INFORMATION
  Report Type: 
  Country: None (occurrence: None)
  Receive Date: 20120113
  Receipt Date: 20120106
  Transmission Date: 20120608
  Serious: Yes (Other)
  Sender: FDA-Public Use
  Company Number: US-JNJFOC-20120104228

PATIENT
  Sex: Male
  Weight: 47.63 kg

DRUGS (2)
  1. INVEGA [Suspect]
     Indication: ATTENTION DEFICIT/HYPERACTIVITY DISORDER
     Route: 048
     Dates: start: 20111101, end: 20111201
  2. INVEGA [Suspect]
     Route: 048
     Dates: start: 20111201

REACTIONS (9)
  - THERAPEUTIC RESPONSE UNEXPECTED [None]
  - FOOD CRAVING [None]
  - ACCIDENT [None]
  - HUNGER [None]
  - WEIGHT INCREASED [None]
  - MEDICATION RESIDUE [None]
  - PRODUCT QUALITY ISSUE [None]
  - OFF LABEL USE [None]
  - DIARRHOEA [None]
